FAERS Safety Report 25962292 (Version 2)
Quarter: 2025Q4

REPORT INFORMATION
  Report Type: Report from Study
  Country: EU (occurrence: EU)
  Receive Date: 20251027
  Receipt Date: 20251217
  Transmission Date: 20260118
  Serious: No
  Sender: ROCHE
  Company Number: EU-ML45551-1045004-5-0

PATIENT
  Age: 24 Year
  Sex: Female
  Weight: 66 kg

DRUGS (1)
  1. OCRELIZUMAB [Suspect]
     Active Substance: OCRELIZUMAB
     Indication: Relapsing multiple sclerosis
     Dosage: DOSE FREQUENCY: ONCE
     Route: 058
     Dates: start: 20250327, end: 20250626

REACTIONS (1)
  - Psoriasis [Not Recovered/Not Resolved]

NARRATIVE: CASE EVENT DATE: 20250626
